FAERS Safety Report 4310274-3 (Version None)
Quarter: 2004Q1

REPORT INFORMATION
  Report Type: 
  Country: None (occurrence: None)
  Receive Date: 20040301
  Receipt Date: 20040301
  Transmission Date: 20041129
  Serious: Yes (Hospitalization)
  Sender: FDA-Public Use
  Company Number: None

PATIENT
  Age: 14 Year
  Sex: Male

DRUGS (1)
  1. TACROLIMUS [Suspect]
     Indication: LIVER TRANSPLANT
     Dates: start: 20030729, end: 20030803

REACTIONS (7)
  - BRAIN SCAN ABNORMAL [None]
  - CONVULSION [None]
  - DRUG LEVEL INCREASED [None]
  - HEPATIC ENZYME INCREASED [None]
  - LIVER TRANSPLANT REJECTION [None]
  - NEUROTOXICITY [None]
  - POST PROCEDURAL COMPLICATION [None]
